FAERS Safety Report 17346369 (Version 1)
Quarter: 2020Q1

REPORT INFORMATION
  Report Type: Report from Study
  Country: US (occurrence: US)
  Receive Date: 20200129
  Receipt Date: 20200129
  Transmission Date: 20200409
  Serious: No
  Sender: FDA-Public Use
  Company Number: US-EXELIXIS-CABO-19022729

PATIENT
  Sex: Female

DRUGS (4)
  1. TYLENOL [Concomitant]
     Active Substance: ACETAMINOPHEN
  2. XANAX [Concomitant]
     Active Substance: ALPRAZOLAM
  3. CABOMETYX [Suspect]
     Active Substance: CABOZANTINIB S-MALATE
     Indication: CARBOHYDRATE ANTIGEN 125 INCREASED
     Dosage: 40 MG,(MON-FRI, OFF WEEKEND)
     Route: 048
     Dates: start: 20190320
  4. VICKS NYQUIL [Concomitant]
     Active Substance: ACETAMINOPHEN\DEXTROMETHORPHAN HYDROBROMIDE\DOXYLAMINE SUCCINATE

REACTIONS (3)
  - Dizziness [Unknown]
  - Off label use [Unknown]
  - Abdominal discomfort [Unknown]
